FAERS Safety Report 11368587 (Version 2)
Quarter: 2016Q2

REPORT INFORMATION
  Report Type: Spontaneous
  Country: US (occurrence: US)
  Receive Date: 20150812
  Receipt Date: 20160525
  Transmission Date: 20160815
  Serious: Yes (Hospitalization)
  Sender: FDA-Public Use
  Company Number: US-ASTRAZENECA-2015SE76758

PATIENT
  Age: 864 Month
  Sex: Male
  Weight: 90.7 kg

DRUGS (3)
  1. SIMVISTATIN [Concomitant]
     Active Substance: SIMVASTATIN
     Indication: HYPERCHOLESTEROLAEMIA
     Route: 048
  2. TUDORZA PRESSAIR [Suspect]
     Active Substance: ACLIDINIUM BROMIDE
     Indication: RESPIRATORY DISORDER
     Route: 055
  3. TUDORZA PRESSAIR [Suspect]
     Active Substance: ACLIDINIUM BROMIDE
     Indication: RESPIRATORY DISORDER
     Route: 055
     Dates: start: 201506

REACTIONS (3)
  - Pneumonia [Unknown]
  - Choking [Unknown]
  - Productive cough [Unknown]

NARRATIVE: CASE EVENT DATE: 201506
